FAERS Safety Report 5470648-4 (Version None)
Quarter: 2007Q3

REPORT INFORMATION
  Report Type: 
  Country: None (occurrence: None)
  Receive Date: 20070925
  Receipt Date: 20070828
  Transmission Date: 20080115
  Serious: Yes (Other)
  Sender: FDA-Public Use
  Company Number: DEPFP-S-20070018

PATIENT
  Age: 59 Year
  Sex: Female

DRUGS (5)
  1. NAVELBINE [Suspect]
     Indication: NON-SMALL CELL LUNG CANCER
     Dosage: 45 MG QD IV
     Route: 042
     Dates: start: 20070213, end: 20070522
  2. NAVELBINE [Suspect]
     Indication: NON-SMALL CELL LUNG CANCER
     Dosage: 45 MG IV
     Route: 042
     Dates: start: 20070320, end: 20070320
  3. NAVELBINE [Suspect]
     Indication: NON-SMALL CELL LUNG CANCER
     Dosage: 45 MG IV
     Route: 042
     Dates: start: 20070403, end: 20070403
  4. NAVELBINE [Suspect]
     Indication: NON-SMALL CELL LUNG CANCER
     Dosage: 45 MG IV
     Route: 042
     Dates: start: 20070424, end: 20070424
  5. FORTECORTIN [Concomitant]

REACTIONS (3)
  - INFUSION RELATED REACTION [None]
  - SPEECH DISORDER [None]
  - VISUAL ACUITY REDUCED [None]
